FAERS Safety Report 19372016 (Version 2)
Quarter: 2023Q2

REPORT INFORMATION
  Report Type: Spontaneous
  Country: US (occurrence: US)
  Receive Date: 20210603
  Receipt Date: 20230516
  Transmission Date: 20230722
  Serious: Yes (Death, Hospitalization)
  Sender: FDA-Public Use
  Company Number: US-MYLANLABS-2021M1032030

PATIENT
  Age: 21 Year
  Sex: Male

DRUGS (5)
  1. CISPLATIN [Suspect]
     Active Substance: CISPLATIN
     Indication: Testicular embryonal carcinoma stage II
     Dosage: UNK, CYCLE (RECEIVED 4 CYCLES AS A PART OF ETOPOSIDE AND CISPLATIN REGIMEN.....
     Route: 065
  2. ETOPOSIDE [Suspect]
     Active Substance: ETOPOSIDE
     Indication: Testicular embryonal carcinoma stage II
     Dosage: UNK, CYCLE (RECEIVED 4 CYCLES)
     Route: 065
  3. PACLITAXEL [Suspect]
     Active Substance: PACLITAXEL
     Indication: Testicular embryonal carcinoma stage II
     Dosage: UNK, CYCLE (RECEIVED 1 CYCLE)
     Route: 065
  4. IFOSFAMIDE [Suspect]
     Active Substance: IFOSFAMIDE
     Indication: Testicular embryonal carcinoma stage II
     Dosage: UNK, CYCLE (RECEIVED 1 CYCLE )
     Route: 065
  5. CARBOPLATIN [Concomitant]
     Active Substance: CARBOPLATIN
     Indication: Testicular embryonal carcinoma stage II
     Dosage: UNK
     Route: 065

REACTIONS (1)
  - Acute lymphocytic leukaemia [Fatal]
